FAERS Safety Report 6764048-4 (Version None)
Quarter: 2010Q2

REPORT INFORMATION
  Report Type: 
  Country: None (occurrence: None)
  Receive Date: 20100610
  Receipt Date: 20100512
  Transmission Date: 20101027
  Serious: Yes (Other)
  Sender: FDA-Public Use
  Company Number: US-WYE-H15208710

PATIENT
  Age: 84 Year
  Sex: Female
  Weight: 49.49 kg

DRUGS (1)
  1. ROBITUSSIN COUGH AND CHEST CONGESTION SUGAR FREE DM [Suspect]
     Indication: COUGH
     Dosage: 2 TSP EVERY 1 DAY;  CUMULATIVE DOSE TO EVENT: 24 TSP
     Route: 048
     Dates: start: 20100505, end: 20100507

REACTIONS (5)
  - CONTUSION [None]
  - FALL [None]
  - HYPOAESTHESIA FACIAL [None]
  - LOSS OF CONSCIOUSNESS [None]
  - PERIORBITAL HAEMATOMA [None]
